FAERS Safety Report 6931247-8 (Version None)
Quarter: 2010Q3

REPORT INFORMATION
  Report Type: 
  Country: None (occurrence: None)
  Receive Date: 20100818
  Receipt Date: 20100810
  Transmission Date: 20110219
  Serious: Yes (Other)
  Sender: FDA-Public Use
  Company Number: FR-ABBOTT-10P-056-0663797-00

PATIENT
  Sex: Male

DRUGS (1)
  1. ENANTONE 11.25 MG [Suspect]
     Indication: PRECOCIOUS PUBERTY
     Route: 050
     Dates: start: 20090301, end: 20091201

REACTIONS (1)
  - SYSTEMIC LUPUS ERYTHEMATOSUS [None]
